FAERS Safety Report 6736572-1 (Version None)
Quarter: 2010Q2

REPORT INFORMATION
  Report Type: 
  Country: None (occurrence: None)
  Receive Date: 20100521
  Receipt Date: 20100512
  Transmission Date: 20101027
  Serious: Yes (Life-Threatening, Disabling)
  Sender: FDA-Public Use
  Company Number: US-JNJFOC-20100506593

PATIENT
  Age: 41 Year
  Sex: Female

DRUGS (8)
  1. INFLIXIMAB [Suspect]
     Indication: DERMATOMYOSITIS
     Route: 042
  2. PREDNISONE [Concomitant]
     Indication: DERMATOMYOSITIS
     Route: 048
  3. HYDROCHLOROTHIAZIDE [Concomitant]
     Indication: DRUG USE FOR UNKNOWN INDICATION
  4. ACTONEL [Concomitant]
     Indication: DRUG USE FOR UNKNOWN INDICATION
  5. METHOTREXATE [Concomitant]
     Indication: DERMATOMYOSITIS
     Route: 058
  6. RITUXAN [Concomitant]
     Indication: DERMATOMYOSITIS
     Route: 042
  7. FOLATE [Concomitant]
     Indication: DRUG USE FOR UNKNOWN INDICATION
  8. TRAMADOL HYDROCHLORIDE [Concomitant]
     Indication: DRUG USE FOR UNKNOWN INDICATION

REACTIONS (1)
  - PROGRESSIVE MULTIFOCAL LEUKOENCEPHALOPATHY [None]
